FAERS Safety Report 12219298 (Version 2)
Quarter: 2016Q2

REPORT INFORMATION
  Report Type: Spontaneous
  Country: US (occurrence: US)
  Receive Date: 20160329
  Receipt Date: 20160407
  Transmission Date: 20160815
  Serious: No
  Sender: FDA-Public Use
  Company Number: US-GILEAD-2016-0205702

PATIENT
  Age: 63 Year
  Sex: Male

DRUGS (2)
  1. CAYSTON [Suspect]
     Active Substance: AZTREONAM
     Indication: PSEUDOMONAS INFECTION
  2. CAYSTON [Suspect]
     Active Substance: AZTREONAM
     Indication: CYSTIC FIBROSIS
     Dosage: 75 MG, UNK
     Route: 055
     Dates: start: 20150219

REACTIONS (4)
  - Laceration [Unknown]
  - Product package associated injury [Unknown]
  - Product closure removal difficult [Unknown]
  - Circumstance or information capable of leading to medication error [Unknown]
